FAERS Safety Report 21938475 (Version 1)
Quarter: 2023Q1

REPORT INFORMATION
  Report Type: Spontaneous
  Country: US (occurrence: US)
  Receive Date: 20230201
  Receipt Date: 20230201
  Transmission Date: 20230418
  Serious: No
  Sender: FDA-Public Use
  Company Number: US-RVL_Pharmaceuticals-USA-POI1255202200407

PATIENT
  Age: 43 Year
  Sex: Female

DRUGS (3)
  1. UPNEEQ [Suspect]
     Active Substance: OXYMETAZOLINE HYDROCHLORIDE
     Indication: Product used for unknown indication
     Dosage: OU
     Route: 047
     Dates: start: 20221129, end: 20221129
  2. UPNEEQ [Suspect]
     Active Substance: OXYMETAZOLINE HYDROCHLORIDE
     Dosage: OU
     Route: 047
     Dates: start: 20221122, end: 20221122
  3. BOTOX [Concomitant]
     Active Substance: ONABOTULINUMTOXINA
     Indication: Product used for unknown indication

REACTIONS (3)
  - Headache [Recovered/Resolved]
  - Dry eye [None]
  - Eye pain [Recovered/Resolved]

NARRATIVE: CASE EVENT DATE: 20221122
